FAERS Safety Report 6188585-9 (Version None)
Quarter: 2009Q2

REPORT INFORMATION
  Report Type: 
  Country: None (occurrence: None)
  Receive Date: 20090513
  Receipt Date: 20090505
  Transmission Date: 20091009
  Serious: Yes (Hospitalization)
  Sender: FDA-Public Use
  Company Number: A0782560A

PATIENT
  Age: 55 Year
  Sex: Female

DRUGS (6)
  1. FLOVENT [Suspect]
     Indication: ASTHMA
     Dosage: 2PUFF TWICE PER DAY
     Route: 055
     Dates: start: 20080410, end: 20080401
  2. VENTOLIN [Suspect]
     Indication: ASTHMA
     Dosage: 2PUFF FOUR TIMES PER DAY
     Route: 055
     Dates: start: 20090327
  3. ADVAIR HFA [Suspect]
     Indication: ASTHMA
     Route: 055
  4. ALBUTEROL [Concomitant]
  5. DIAZEPAM [Concomitant]
  6. COMBIVENT [Concomitant]

REACTIONS (5)
  - LIP SWELLING [None]
  - LUNG DISORDER [None]
  - ORAL DISCOMFORT [None]
  - SWOLLEN TONGUE [None]
  - TONGUE DISORDER [None]
